FAERS Safety Report 19520079 (Version 1)
Quarter: 2021Q3

REPORT INFORMATION
  Report Type: Spontaneous
  Country: US (occurrence: US)
  Receive Date: 20210712
  Receipt Date: 20210712
  Transmission Date: 20211014
  Serious: No
  Sender: FDA-Public Use
  Company Number: US-SECURA BIO, INC.-2021US000820

PATIENT

DRUGS (1)
  1. COPIKTRA [Suspect]
     Active Substance: DUVELISIB
     Indication: CUTANEOUS LYMPHOMA
     Dosage: UNK
     Route: 048
     Dates: start: 20210120

REACTIONS (4)
  - Off label use [Unknown]
  - Arthralgia [Unknown]
  - Abdominal pain [Unknown]
  - Myalgia [Unknown]

NARRATIVE: CASE EVENT DATE: 20210120
